FAERS Safety Report 19378158 (Version 4)
Quarter: 2021Q3

REPORT INFORMATION
  Report Type: Spontaneous
  Country: FR (occurrence: FR)
  Receive Date: 20210605
  Receipt Date: 20210909
  Transmission Date: 20211014
  Serious: Yes (Hospitalization, Other)
  Sender: FDA-Public Use
  Company Number: NVSC2021FR116954

PATIENT
  Age: 69 Year
  Sex: Female
  Weight: 69 kg

DRUGS (7)
  1. OLANZAPINE. [Suspect]
     Active Substance: OLANZAPINE
     Indication: WRONG PATIENT
     Dosage: 10MG (SINGLE INTAKE)
     Route: 048
     Dates: start: 20210427
  2. XANAX [Interacting]
     Active Substance: ALPRAZOLAM
     Indication: WRONG PATIENT
     Dosage: 0.25 MG (SINGLE INTAKE)
     Route: 048
     Dates: start: 20210427
  3. ALPRAZOLAM. [Interacting]
     Active Substance: ALPRAZOLAM
     Indication: WRONG PATIENT
     Dosage: 0.25MG (SINGLE INTAKE)
     Route: 048
     Dates: start: 20210427
  4. LORMETAZEPAM [Interacting]
     Active Substance: LORMETAZEPAM
     Indication: WRONG PATIENT
     Dosage: 1DF (SINGLE INTAKE)
     Route: 048
     Dates: start: 20210427
  5. IMOVANE [Interacting]
     Active Substance: ZOPICLONE
     Indication: WRONG PATIENT
     Dosage: 1DF (SINGLE INTAKE)
     Route: 048
     Dates: start: 20210427
  6. TERCIAN [Interacting]
     Active Substance: CYAMEMAZINE
     Indication: WRONG PATIENT
     Dosage: 25MG (SINGLE INTAKE)
     Route: 048
     Dates: start: 20210427
  7. THERALENE [Interacting]
     Active Substance: TRIMEPRAZINE
     Indication: WRONG PATIENT
     Dosage: 100DF (SINGLE INTAKE)
     Route: 048
     Dates: start: 20210427

REACTIONS (3)
  - Wrong patient [Unknown]
  - Coma [Recovered/Resolved]
  - Drug interaction [Recovered/Resolved]

NARRATIVE: CASE EVENT DATE: 20210427
